FAERS Safety Report 5267424-4 (Version None)
Quarter: 2007Q1

REPORT INFORMATION
  Report Type: 
  Country: None (occurrence: None)
  Receive Date: 20070313
  Receipt Date: 20070221
  Transmission Date: 20070707
  Serious: Yes (Other)
  Sender: FDA-Public Use
  Company Number: ENTC2007-0044

PATIENT
  Sex: Male

DRUGS (1)
  1. STALEVO 50 [Suspect]
     Indication: PARKINSON'S DISEASE

REACTIONS (2)
  - DIALYSIS [None]
  - PARKINSONISM [None]
